FAERS Safety Report 23379841 (Version 1)
Quarter: 2024Q1

REPORT INFORMATION
  Report Type: Spontaneous
  Country: US (occurrence: US)
  Receive Date: 20240108
  Receipt Date: 20240108
  Transmission Date: 20240410
  Serious: Yes (Hospitalization, Other)
  Sender: FDA-Public Use
  Company Number: US-STERISCIENCE B.V.-2023-ST-001516

PATIENT
  Age: 4 Month
  Sex: Male

DRUGS (4)
  1. GANCICLOVIR SODIUM [Suspect]
     Active Substance: GANCICLOVIR SODIUM
     Indication: Congenital cytomegalovirus infection
     Dosage: 5 MILLIGRAM/KILOGRAM, BID, INITIALLY ADMINISTERED FOR 16 DAYS AND LATER CONTINUED
     Route: 042
  2. GANCICLOVIR SODIUM [Suspect]
     Active Substance: GANCICLOVIR SODIUM
     Indication: Retinitis
  3. VALGANCICLOVIR [Concomitant]
     Active Substance: VALGANCICLOVIR
     Indication: Congenital cytomegalovirus infection
     Dosage: 16 MILLIGRAM/KILOGRAM, BID, FOR AN INTENDED SIX MONTHS COURSE
     Route: 048
  4. VALGANCICLOVIR [Concomitant]
     Active Substance: VALGANCICLOVIR
     Indication: Retinitis

REACTIONS (2)
  - Pathogen resistance [Unknown]
  - Off label use [Unknown]
